FAERS Safety Report 9929213 (Version 2)
Quarter: 2014Q3

REPORT INFORMATION
  Report Type: Spontaneous
  Country: CA (occurrence: None)
  Receive Date: 20140224
  Receipt Date: 20140806
  Transmission Date: 20150326
  Serious: Yes (Hospitalization, Other)
  Sender: FDA-Public Use
  Company Number: CA14-111

PATIENT
  Age: 0 Day
  Sex: Male

DRUGS (8)
  1. DICLECTIN [Suspect]
     Active Substance: DOXYLAMINE\PYRIDOXINE
     Route: 064
     Dates: start: 2012, end: 2012
  2. NICOTINE. [Suspect]
     Active Substance: NICOTINE
     Route: 064
     Dates: start: 2011, end: 2012
  3. SUBOXONE [Suspect]
     Active Substance: BUPRENORPHINE HYDROCHLORIDE\NALOXONE HYDROCHLORIDE
     Indication: DRUG DEPENDENCE
     Route: 064
     Dates: start: 2012, end: 2012
  4. SUBUTEX [Suspect]
     Active Substance: BUPRENORPHINE HYDROCHLORIDE
     Indication: DRUG DEPENDENCE
     Route: 064
     Dates: start: 2012, end: 2012
  5. PAXIL CR [Suspect]
     Active Substance: PAROXETINE HYDROCHLORIDE
     Indication: ANXIETY
     Route: 064
     Dates: start: 2011, end: 2012
  6. FOLIC ACID. [Suspect]
     Active Substance: FOLIC ACID
     Route: 064
     Dates: start: 2012, end: 2012
  7. OXYCONTIN [Suspect]
     Active Substance: OXYCODONE HYDROCHLORIDE
     Route: 064
     Dates: start: 2011, end: 2012
  8. PRENATAL VITAMINS [Suspect]
     Active Substance: VITAMINS
     Indication: PREGNANCY
     Route: 064
     Dates: start: 2012, end: 2012

REACTIONS (5)
  - Maternal drugs affecting foetus [None]
  - Low birth weight baby [None]
  - Premature baby [None]
  - Tremor neonatal [None]
  - Foetal exposure during pregnancy [None]

NARRATIVE: CASE EVENT DATE: 2012
